FAERS Safety Report 20152189 (Version 2)
Quarter: 2022Q1

REPORT INFORMATION
  Report Type: Spontaneous
  Country: CO (occurrence: CO)
  Receive Date: 20211206
  Receipt Date: 20220325
  Transmission Date: 20220423
  Serious: No
  Sender: FDA-Public Use
  Company Number: CO-PFIZER INC-2021860913

PATIENT

DRUGS (1)
  1. GENOTROPIN [Suspect]
     Active Substance: SOMATROPIN
     Dosage: UNK
     Dates: end: 202107

REACTIONS (3)
  - Drug dose omission by device [Unknown]
  - Expired device used [Recovered/Resolved]
  - Device information output issue [Unknown]

NARRATIVE: CASE EVENT DATE: 20200930
